FAERS Safety Report 8419848-1 (Version None)
Quarter: 2012Q2

REPORT INFORMATION
  Report Type: 
  Country: None (occurrence: None)
  Receive Date: 20120607
  Receipt Date: 20120605
  Transmission Date: 20120825
  Serious: No
  Sender: FDA-Public Use
  Company Number: US-PFIZER INC-2012097929

PATIENT
  Sex: Female
  Weight: 82.5 kg

DRUGS (1)
  1. CHANTIX [Suspect]
     Indication: SMOKING CESSATION THERAPY
     Dosage: 0.5 MG, DAILY
     Route: 048
     Dates: start: 20120408, end: 20120410

REACTIONS (3)
  - DISTURBANCE IN ATTENTION [None]
  - SEDATION [None]
  - ACTIVITIES OF DAILY LIVING IMPAIRED [None]
